FAERS Safety Report 15490571 (Version 1)
Quarter: 2018Q4

REPORT INFORMATION
  Report Type: Report from Study
  Country: BR (occurrence: BR)
  Receive Date: 20181011
  Receipt Date: 20181011
  Transmission Date: 20190205
  Serious: Yes (Other)
  Sender: FDA-Public Use
  Company Number: PHHY2018BR120789

PATIENT
  Age: 84 Year
  Sex: Female

DRUGS (2)
  1. ACLASTA [Suspect]
     Active Substance: ZOLEDRONIC ACID
     Indication: PRODUCT USED FOR UNKNOWN INDICATION
     Dosage: UNK
     Route: 065
  2. ACLASTA [Suspect]
     Active Substance: ZOLEDRONIC ACID
     Dosage: UNK
     Route: 065
     Dates: start: 20170922

REACTIONS (6)
  - Cardiac disorder [Unknown]
  - Renal disorder [Unknown]
  - Kidney infection [Not Recovered/Not Resolved]
  - Pruritus [Not Recovered/Not Resolved]
  - Lower limb fracture [Unknown]
  - Hypersensitivity [Not Recovered/Not Resolved]
